FAERS Safety Report 21909920 (Version 1)
Quarter: 2023Q1

REPORT INFORMATION
  Report Type: Spontaneous
  Country: US (occurrence: None)
  Receive Date: 20230125
  Receipt Date: 20230125
  Transmission Date: 20230418
  Serious: Yes (Life-Threatening)
  Sender: FDA-Public Use
  Company Number: None

PATIENT
  Age: 41 Year
  Sex: Female
  Weight: 46.27 kg

DRUGS (3)
  1. MINOXIDIL\SPIRONOLACTONE [Suspect]
     Active Substance: MINOXIDIL\SPIRONOLACTONE
     Indication: Hair disorder
     Dosage: FREQUENCY : DAILY;?
     Route: 048
     Dates: start: 20230105, end: 20230113
  2. ADDERALL [Concomitant]
     Active Substance: AMPHETAMINE ASPARTATE\AMPHETAMINE SULFATE\DEXTROAMPHETAMINE SACCHARATE\DEXTROAMPHETAMINE SULFATE
  3. XANAX [Concomitant]
     Active Substance: ALPRAZOLAM

REACTIONS (7)
  - Confusional state [None]
  - Dizziness [None]
  - Blindness [None]
  - Incoherent [None]
  - Dyspnoea [None]
  - Hypotension [None]
  - Syncope [None]

NARRATIVE: CASE EVENT DATE: 20230113
